FAERS Safety Report 7348995-0 (Version None)
Quarter: 2011Q1

REPORT INFORMATION
  Report Type: 
  Country: None (occurrence: None)
  Receive Date: 20110314
  Receipt Date: 20110303
  Transmission Date: 20110831
  Serious: Yes (Other)
  Sender: FDA-Public Use
  Company Number: BR-ELI_LILLY_AND_COMPANY-BR201012003765

PATIENT
  Sex: Female
  Weight: 56 kg

DRUGS (2)
  1. HUMULIN N [Suspect]
     Indication: TYPE 2 DIABETES MELLITUS
     Dosage: 30 IU, DAILY (1/D)
     Route: 058
     Dates: start: 20060101
  2. METFORMIN HYDROCHLORIDE [Concomitant]
     Indication: DIABETES MELLITUS
     Dosage: UNK, DAILY (1/D)
     Route: 048
     Dates: start: 20090101

REACTIONS (5)
  - VISUAL ACUITY REDUCED [None]
  - DIABETIC NEUROPATHY [None]
  - PERIPHERAL NERVE LESION [None]
  - VISION BLURRED [None]
  - URINARY TRACT INFECTION [None]
